FAERS Safety Report 18807747 (Version 2)
Quarter: 2021Q1

REPORT INFORMATION
  Report Type: Other
  Country: EG (occurrence: EG)
  Receive Date: 20210129
  Receipt Date: 20210225
  Transmission Date: 20210419
  Serious: Yes (Hospitalization)
  Sender: FDA-Public Use
  Company Number: EG-ROCHE-2755714

PATIENT
  Age: 46 Year
  Sex: Female
  Weight: 86 kg

DRUGS (2)
  1. OCREVUS [Suspect]
     Active Substance: OCRELIZUMAB
     Indication: MULTIPLE SCLEROSIS
     Dosage: ONGOING
     Route: 042
     Dates: start: 20200308
  2. CORTISON [Concomitant]
     Active Substance: CORTISONE ACETATE
     Dates: start: 20201230

REACTIONS (16)
  - Dysphagia [Recovered/Resolved]
  - Tachycardia [Unknown]
  - Pain in extremity [Unknown]
  - Diarrhoea [Unknown]
  - Blood glucose increased [Unknown]
  - Fatigue [Not Recovered/Not Resolved]
  - Joint stiffness [Not Recovered/Not Resolved]
  - Chest pain [Recovered/Resolved]
  - Dysuria [Recovered/Resolved]
  - White blood cells urine positive [Recovered/Resolved]
  - Urinary incontinence [Not Recovered/Not Resolved]
  - Bacterial test positive [Recovered/Resolved]
  - Tongue blistering [Recovered/Resolved]
  - Aggression [Not Recovered/Not Resolved]
  - Rash [Unknown]
  - Thrombosis [Unknown]

NARRATIVE: CASE EVENT DATE: 20201012
